FAERS Safety Report 9220896 (Version 1)
Quarter: 2013Q2

REPORT INFORMATION
  Report Type: Spontaneous
  Country: US (occurrence: US)
  Receive Date: 20130409
  Receipt Date: 20130409
  Transmission Date: 20140414
  Serious: Yes (Hospitalization, Other)
  Sender: FDA-Public Use
  Company Number: US-ELI_LILLY_AND_COMPANY-US201304000319

PATIENT
  Sex: Male

DRUGS (1)
  1. HUMATROPE [Suspect]
     Dosage: UNK, UNKNOWN
     Route: 065

REACTIONS (5)
  - Respiratory disorder [Unknown]
  - Lung disorder [Unknown]
  - Asthma [Unknown]
  - Vomiting [Unknown]
  - Chest pain [Unknown]
